FAERS Safety Report 7209730-X (Version None)
Quarter: 2011Q1

REPORT INFORMATION
  Report Type: 
  Country: None (occurrence: None)
  Receive Date: 20110104
  Receipt Date: 20101229
  Transmission Date: 20110831
  Serious: Yes (Hospitalization, Other)
  Sender: FDA-Public Use
  Company Number: US-AMGEN-QUU347485

PATIENT

DRUGS (3)
  1. ENBREL [Suspect]
     Dates: start: 20070730
  2. ENBREL [Suspect]
     Indication: RHEUMATOID ARTHRITIS
     Dosage: 50 MG, QWK
     Route: 058
     Dates: start: 20070830
  3. LEFLUNOMIDE [Concomitant]
     Dosage: 20 MG, QD
     Dates: start: 20080501

REACTIONS (4)
  - NEUROPATHY PERIPHERAL [None]
  - ARNOLD-CHIARI MALFORMATION [None]
  - AMNESIA [None]
  - INJECTION SITE PAIN [None]
